FAERS Safety Report 4351924-5 (Version None)
Quarter: 2004Q2

REPORT INFORMATION
  Report Type: 
  Country: None (occurrence: None)
  Receive Date: 20040429
  Receipt Date: 20040122
  Transmission Date: 20050107
  Serious: No
  Sender: FDA-Public Use
  Company Number: 2004-112526-NL

PATIENT
  Age: 29 Year
  Sex: Female
  Weight: 104.55 kg

DRUGS (2)
  1. NUVARING [Suspect]
     Indication: CONTRACEPTION
     Dosage: DF DAILY VAGINAL
     Route: 067
     Dates: start: 20031201, end: 20040118
  2. UNKNOWN BLOOD PRESSURE MEDICATION [Concomitant]

REACTIONS (2)
  - MENORRHAGIA [None]
  - PAIN IN EXTREMITY [None]
